FAERS Safety Report 25978414 (Version 1)
Quarter: 2025Q4

REPORT INFORMATION
  Report Type: Report from Study
  Country: US (occurrence: US)
  Receive Date: 20251030
  Receipt Date: 20251030
  Transmission Date: 20260117
  Serious: Yes (Hospitalization)
  Sender: ACADIA PHARMACEUTICALS
  Company Number: US-ACADIA PHARMACEUTICALS INC.-ACA-2025-PIM-011567

PATIENT
  Sex: Male

DRUGS (15)
  1. NUPLAZID [Suspect]
     Active Substance: PIMAVANSERIN TARTRATE
     Indication: Parkinson^s disease
     Dosage: 34 MILLIGRAM, QD
     Route: 048
  2. NUPLAZID [Suspect]
     Active Substance: PIMAVANSERIN TARTRATE
     Indication: Hallucination
  3. NUPLAZID [Suspect]
     Active Substance: PIMAVANSERIN TARTRATE
     Indication: Delusion
  4. VITAMIN D3 [Concomitant]
     Active Substance: CHOLECALCIFEROL
     Dosage: 200
  5. ALBUTEROL SULFATE [Concomitant]
     Active Substance: ALBUTEROL SULFATE
     Dosage: 108 (90)
  6. RIVASTIGMINE [Concomitant]
     Active Substance: RIVASTIGMINE
  7. ALLOPURINOL [Concomitant]
     Active Substance: ALLOPURINOL
  8. FINASTERIDE [Concomitant]
     Active Substance: FINASTERIDE
  9. CARBIDOPA\LEVODOPA [Concomitant]
     Active Substance: CARBIDOPA\LEVODOPA
  10. MEMANTINE [Concomitant]
     Active Substance: MEMANTINE
  11. ROSUVASTATIN [Concomitant]
     Active Substance: ROSUVASTATIN
  12. ALCOHOL PREP PAD [Concomitant]
  13. HAND SANITIZER NOS [Concomitant]
     Active Substance: UNSPECIFIED INGREDIENT
  14. PHENOL, LIQUEFIED [Concomitant]
     Active Substance: PHENOL
  15. BACITRACIN ZINC\NEOMYCIN SULFATE\POLYMYXIN B SULFATE [Concomitant]
     Active Substance: BACITRACIN ZINC\NEOMYCIN SULFATE\POLYMYXIN B SULFATE

REACTIONS (2)
  - Delusion [Unknown]
  - Fatigue [Unknown]
